FAERS Safety Report 8419047-3 (Version None)
Quarter: 2012Q2

REPORT INFORMATION
  Report Type: 
  Country: None (occurrence: None)
  Receive Date: 20120607
  Receipt Date: 20120604
  Transmission Date: 20120825
  Serious: Yes (Hospitalization)
  Sender: FDA-Public Use
  Company Number: PHHY2012FR048445

PATIENT
  Sex: Female

DRUGS (4)
  1. RASILEZ [Suspect]
     Indication: HYPERTENSION
     Dosage: 300 MG, QD
     Route: 048
     Dates: end: 20120201
  2. VITAMINE D3 [Concomitant]
  3. SOTALOL HCL [Concomitant]
  4. CRESTOR [Concomitant]

REACTIONS (4)
  - BRAIN OEDEMA [None]
  - FALL [None]
  - LOSS OF CONSCIOUSNESS [None]
  - HYPONATRAEMIA [None]
